FAERS Safety Report 19021578 (Version 1)
Quarter: 2021Q1

REPORT INFORMATION
  Report Type: Spontaneous
  Country: GB (occurrence: GB)
  Receive Date: 20210317
  Receipt Date: 20210317
  Transmission Date: 20210420
  Serious: Yes (Hospitalization)
  Sender: FDA-Public Use
  Company Number: GB-ASTRAZENECA-2021A118689

PATIENT
  Age: 85 Year
  Sex: Male

DRUGS (17)
  1. ATORVASTATIN [Concomitant]
     Active Substance: ATORVASTATIN
     Dosage: 80, EVERY DAY
  2. EPLERENONE. [Concomitant]
     Active Substance: EPLERENONE
     Dosage: 25, EVERY DAY
  3. APIXABAN [Concomitant]
     Active Substance: APIXABAN
     Dosage: 2.5, TWO TIMES A DAY
  4. OMEPRAZOLE. [Suspect]
     Active Substance: OMEPRAZOLE
     Dosage: 20, TWO TIMES A DAY
     Route: 048
  5. ACIDEX [Concomitant]
     Dosage: ONE OR TWO 5ML SPOONFULS TO BE TAKEN AFTER MEALS AND AT BEDTIME
  6. BUMETANIDE. [Concomitant]
     Active Substance: BUMETANIDE
     Dosage: MORNING AND AT LUNCH
  7. HYDROMOL OINTMENT [Concomitant]
     Active Substance: PARAFFIN\WAX, EMULSIFYING
     Dosage: APPLY AS NEEDED
  8. GLICLAZIDE [Concomitant]
     Active Substance: GLICLAZIDE
     Dosage: TWO TO BE TAKEN DAILY WITH BREAKFAST AND ONE TABLET EVENING
  9. RAMIPRIL. [Concomitant]
     Active Substance: RAMIPRIL
     Dosage: 2.5, AT NIGHT
  10. FERROUS FUMARATE [Concomitant]
     Active Substance: FERROUS FUMARATE
     Dosage: 210, THREE TIMES A DAY
  11. MIRABEGRON [Concomitant]
     Active Substance: MIRABEGRON
     Dosage: 50,EVERY DAY
  12. QUININE [Concomitant]
     Active Substance: QUININE
     Dosage: 300, EVERY DAY
  13. FOLIC ACID. [Concomitant]
     Active Substance: FOLIC ACID
     Dosage: 5, EVERY DAY
  14. METFORMIN [Concomitant]
     Active Substance: METFORMIN HYDROCHLORIDE
     Dosage: 1, TWO TIMES A DAY
  15. BISOPROLOL [Concomitant]
     Active Substance: BISOPROLOL
     Dosage: 1.25, EVERY DAY
  16. VOLTAROL [Concomitant]
     Active Substance: DICLOFENAC SODIUM
     Dosage: 1.16% APPLY THREE OR FOUR TIMES A DAY
  17. SODIUM HYALURONATE [Concomitant]
     Active Substance: HYALURONATE SODIUM
     Dosage: 0.2%

REACTIONS (2)
  - Blood calcium decreased [Recovered/Resolved]
  - Blood magnesium decreased [Recovered/Resolved]
